FAERS Safety Report 7980818-9 (Version None)
Quarter: 2011Q4

REPORT INFORMATION
  Report Type: 
  Country: None (occurrence: None)
  Receive Date: 20111214
  Receipt Date: 20111205
  Transmission Date: 20120403
  Serious: Yes (Death, Life-Threatening, Hospitalization, Disabling, Other)
  Sender: FDA-Public Use
  Company Number: US-ROCHE-799190

PATIENT
  Sex: Male

DRUGS (3)
  1. MABTHERA [Suspect]
     Indication: IDIOPATHIC THROMBOCYTOPENIC PURPURA
     Route: 065
  2. DANAZOL [Concomitant]
     Indication: PRODUCT USED FOR UNKNOWN INDICATION
  3. ROMIPLOSTIM [Suspect]
     Indication: IDIOPATHIC THROMBOCYTOPENIC PURPURA
     Dosage: 8 MCG/KG, 1/WEEK
     Route: 065
     Dates: start: 20110125, end: 20110620

REACTIONS (17)
  - HAEMATURIA [None]
  - HEPATOSPLENOMEGALY [None]
  - MOUTH HAEMORRHAGE [None]
  - BACTERIAL TEST POSITIVE [None]
  - HAEMATOLOGICAL MALIGNANCY [None]
  - MYELOFIBROSIS [None]
  - BONE MARROW RETICULIN FIBROSIS [None]
  - FALL [None]
  - URINARY BLADDER HAEMORRHAGE [None]
  - INFLAMMATION [None]
  - BACTERIAL DISEASE CARRIER [None]
  - DEATH [None]
  - THERAPEUTIC RESPONSE DECREASED [None]
  - HAEMATOMA [None]
  - THROMBOCYTOPENIA [None]
  - GINGIVAL BLEEDING [None]
  - GENERAL PHYSICAL HEALTH DETERIORATION [None]
